FAERS Safety Report 7344651-3 (Version None)
Quarter: 2011Q1

REPORT INFORMATION
  Report Type: 
  Country: None (occurrence: None)
  Receive Date: 20110310
  Receipt Date: 20110301
  Transmission Date: 20110831
  Serious: Yes (Hospitalization, Disabling, Other)
  Sender: FDA-Public Use
  Company Number: US-MERCK-0808USA04964

PATIENT
  Age: 61 Year
  Sex: Female
  Weight: 66 kg

DRUGS (6)
  1. [THERAPY UNSPECIFIED] [Concomitant]
     Indication: RHEUMATOID ARTHRITIS
     Route: 065
     Dates: start: 19960101
  2. BONIVA [Suspect]
     Route: 065
     Dates: start: 20070212, end: 20070308
  3. BONIVA [Suspect]
     Route: 065
     Dates: start: 20061001, end: 20061201
  4. FOSAMAX [Suspect]
     Indication: OSTEOPENIA
     Route: 048
     Dates: start: 20050501, end: 20061001
  5. [THERAPY UNSPECIFIED] [Concomitant]
     Indication: HYPERTENSION
     Route: 065
     Dates: start: 19960101
  6. FOSAMAX [Suspect]
     Indication: OSTEOPOROSIS
     Route: 048
     Dates: start: 20050501, end: 20061001

REACTIONS (34)
  - CELLULITIS [None]
  - ARTHROPATHY [None]
  - PNEUMONIA VIRAL [None]
  - UPPER RESPIRATORY TRACT INFECTION [None]
  - SKIN LESION [None]
  - OSTEONECROSIS OF JAW [None]
  - ABSCESS ORAL [None]
  - PALPITATIONS [None]
  - NEUROPATHY PERIPHERAL [None]
  - COMPRESSION FRACTURE [None]
  - NASAL CONGESTION [None]
  - TINNITUS [None]
  - HEADACHE [None]
  - BONE DISORDER [None]
  - BACTERIAL INFECTION [None]
  - WEIGHT DECREASED [None]
  - ACNE [None]
  - OSTEOMYELITIS [None]
  - KYPHOSIS [None]
  - RASH [None]
  - FATIGUE [None]
  - BLOOD PRESSURE INADEQUATELY CONTROLLED [None]
  - CONVULSION [None]
  - LETHARGY [None]
  - INFECTED SEBACEOUS CYST [None]
  - TYPE 2 DIABETES MELLITUS [None]
  - UPPER LIMB FRACTURE [None]
  - MUSCLE DISORDER [None]
  - ABDOMINAL PAIN [None]
  - IMPAIRED HEALING [None]
  - NAIL PSORIASIS [None]
  - ORAL CANDIDIASIS [None]
  - NEOPLASM SKIN [None]
  - DEPRESSION [None]
